FAERS Safety Report 4489991-0 (Version None)
Quarter: 2004Q4

REPORT INFORMATION
  Report Type: 
  Country: None (occurrence: None)
  Receive Date: 20041028
  Receipt Date: 20031215
  Transmission Date: 20050328
  Serious: Yes (Other)
  Sender: FDA-Public Use
  Company Number: CHPA2003US06062

PATIENT
  Sex: Male

DRUGS (1)
  1. TRIAMINIC COLD AND NIGHT TIME COUGH GRAPE (NCH) (CHLORPHENIRAMINE MALE [Suspect]
     Dosage: 1/4 TO 1/2 TSP, QD, ORAL
     Route: 048

REACTIONS (3)
  - CIRCULATORY COLLAPSE [None]
  - LOSS OF CONSCIOUSNESS [None]
  - SOMNOLENCE [None]
